FAERS Safety Report 12862040 (Version 1)
Quarter: 2016Q4

REPORT INFORMATION
  Report Type: Spontaneous
  Country: US (occurrence: US)
  Receive Date: 20161019
  Receipt Date: 20161019
  Transmission Date: 20170207
  Serious: No
  Sender: FDA-Public Use
  Company Number: US-ELI_LILLY_AND_COMPANY-US201610000728

PATIENT
  Sex: Male

DRUGS (1)
  1. CIALIS [Suspect]
     Active Substance: TADALAFIL
     Indication: ERECTILE DYSFUNCTION
     Dosage: UNK, QD
     Route: 048
     Dates: start: 201609, end: 20161001

REACTIONS (3)
  - Back pain [Recovering/Resolving]
  - Blood glucose increased [Unknown]
  - Intentional product misuse [Unknown]
